FAERS Safety Report 7609200-0 (Version None)
Quarter: 2011Q3

REPORT INFORMATION
  Report Type: 
  Country: None (occurrence: None)
  Receive Date: 20110713
  Receipt Date: 20110713
  Transmission Date: 20111222
  Serious: Yes (Death)
  Sender: FDA-Public Use
  Company Number: None

PATIENT
  Age: 79 Year
  Sex: Male
  Weight: 88 kg

DRUGS (2)
  1. ENTEREG [Suspect]
     Indication: COLECTOMY
     Dosage: 12MG PREOP PO; 12MG BID PO
     Route: 048
     Dates: start: 20110617, end: 20110618
  2. ENTEREG [Suspect]
     Indication: POSTOPERATIVE CARE
     Dosage: 12MG PREOP PO; 12MG BID PO
     Route: 048
     Dates: start: 20110617, end: 20110618

REACTIONS (5)
  - VENTRICULAR FIBRILLATION [None]
  - BLOOD POTASSIUM DECREASED [None]
  - CARDIAC ARREST [None]
  - NERVOUS SYSTEM DISORDER [None]
  - HYPOTHERMIA [None]
